FAERS Safety Report 6896575 (Version 7)
Quarter: 2013Q1

REPORT INFORMATION
  Report Type: Spontaneous
  Country: US (occurrence: US)
  Receive Date: 20090130
  Receipt Date: 20130104
  Transmission Date: 20140127
  Serious: Yes (Hospitalization)
  Sender: FDA-Public Use
  Company Number: US-BIOGENIDEC-2009BI002700

PATIENT
  Age: 53 Year
  Sex: Female

DRUGS (2)
  1. AVONEX [Suspect]
     Indication: MULTIPLE SCLEROSIS
     Route: 030
     Dates: start: 20080825, end: 20091123
  2. AVONEX [Suspect]
     Indication: MULTIPLE SCLEROSIS
     Route: 030
     Dates: start: 20110917

REACTIONS (8)
  - Pituitary tumour benign [Recovered/Resolved]
  - Sleep disorder [Recovered/Resolved]
  - Irritability [Recovered/Resolved]
  - Weight decreased [Unknown]
  - Diabetes mellitus [Not Recovered/Not Resolved]
  - Arthritis [Not Recovered/Not Resolved]
  - Fatigue [Unknown]
  - Dizziness [Recovered/Resolved]
